FAERS Safety Report 12361169 (Version 2)
Quarter: 2016Q2

REPORT INFORMATION
  Report Type: Spontaneous
  Country: IN (occurrence: IN)
  Receive Date: 20160512
  Receipt Date: 20160518
  Transmission Date: 20160815
  Serious: Yes (Other)
  Sender: FDA-Public Use
  Company Number: IN-WATSON-2016-09877

PATIENT
  Sex: Female

DRUGS (4)
  1. CLOZAPINE (UNKNOWN) [Suspect]
     Active Substance: CLOZAPINE
     Dosage: TITRATED TO 400 MG, UNKNOWN, IN DIVIDED DOSES
     Route: 065
  2. CLOZAPINE (UNKNOWN) [Suspect]
     Active Substance: CLOZAPINE
     Dosage: TITRATED TO 400 MG, UNKNOWN, IN DIVIDED DOSES
     Route: 065
  3. CLOZAPINE (UNKNOWN) [Suspect]
     Active Substance: CLOZAPINE
     Indication: PRODUCT USED FOR UNKNOWN INDICATION
     Dosage: 400 MG, UNKNOWN
     Route: 065
  4. CLOZAPINE (UNKNOWN) [Suspect]
     Active Substance: CLOZAPINE
     Dosage: 400 MG, UNKNOWN
     Route: 065

REACTIONS (4)
  - Dystonia [Recovered/Resolved]
  - Rebound psychosis [Recovered/Resolved]
  - Oculogyric crisis [Recovered/Resolved]
  - Drug withdrawal syndrome [Recovered/Resolved]
